FAERS Safety Report 9326211 (Version 3)
Quarter: 2013Q3

REPORT INFORMATION
  Report Type: Report from Study
  Country: FR (occurrence: FR)
  Receive Date: 20130604
  Receipt Date: 20130708
  Transmission Date: 20140515
  Serious: Yes (Hospitalization)
  Sender: FDA-Public Use
  Company Number: FR-PFIZER INC-2013165751

PATIENT
  Age: 14 Year
  Sex: Female

DRUGS (6)
  1. ADRIBLASTINE [Suspect]
     Indication: NEOPLASM MALIGNANT
     Dosage: 50 MG, 2X/DAY
     Route: 042
  2. VINCRISTINE [Suspect]
     Indication: NEOPLASM MALIGNANT
     Dosage: 2 MG, 1X/DAY
     Route: 042
     Dates: start: 20130508
  3. ACTINOMYCIN D [Suspect]
     Indication: NEOPLASM MALIGNANT
     Dosage: 2 MG, SINGLE
     Route: 042
     Dates: start: 20130508
  4. HOLOXAN [Suspect]
     Indication: NEOPLASM MALIGNANT
     Dosage: 5000 MG, 2X/DAY
     Route: 042
     Dates: start: 20130508
  5. BACTRIM [Concomitant]
     Dosage: 340 MG, UNK
     Dates: start: 20130510
  6. ENANTONE [Concomitant]
     Dosage: 375 MG, UNK
     Dates: start: 20130510

REACTIONS (1)
  - Febrile bone marrow aplasia [Recovered/Resolved]
